FAERS Safety Report 17485081 (Version 1)
Quarter: 2020Q1

REPORT INFORMATION
  Report Type: Spontaneous
  Country: JP (occurrence: JP)
  Receive Date: 20200302
  Receipt Date: 20200302
  Transmission Date: 20200409
  Serious: Yes (Hospitalization)
  Sender: FDA-Public Use
  Company Number: JP-SHIRE-JP202008034

PATIENT

DRUGS (2)
  1. LIALDA [Suspect]
     Active Substance: MESALAMINE
     Indication: COLITIS ULCERATIVE
     Dosage: 4800 INTERNATIONAL UNIT, 1X/DAY:QD
     Route: 048
     Dates: start: 20200201, end: 20200217
  2. LIALDA [Suspect]
     Active Substance: MESALAMINE
     Dosage: 4800 INTERNATIONAL UNIT, 1X/DAY:QD
     Route: 048
     Dates: start: 20200219, end: 20200219

REACTIONS (1)
  - Pleurisy [Recovering/Resolving]

NARRATIVE: CASE EVENT DATE: 20200217
